FAERS Safety Report 24588305 (Version 1)
Quarter: 2024Q4

REPORT INFORMATION
  Report Type: Spontaneous
  Country: RU (occurrence: RU)
  Receive Date: 20241107
  Receipt Date: 20241107
  Transmission Date: 20250115
  Serious: Yes (Other)
  Sender: EXELIXIS
  Company Number: RU-IPSEN Group, Research and Development-2024-22210

PATIENT
  Age: 68 Year
  Sex: Female

DRUGS (1)
  1. CABOMETYX [Suspect]
     Active Substance: CABOZANTINIB S-MALATE
     Indication: Renal cancer
     Dosage: 60 MG
     Route: 065
     Dates: start: 202312

REACTIONS (2)
  - Immune-mediated hypothyroidism [Unknown]
  - Goitre [Unknown]

NARRATIVE: CASE EVENT DATE: 20240101
